FAERS Safety Report 5464465-9 (Version None)
Quarter: 2007Q3

REPORT INFORMATION
  Report Type: 
  Country: None (occurrence: None)
  Receive Date: 20070921
  Receipt Date: 20070904
  Transmission Date: 20080115
  Serious: Yes (Other)
  Sender: FDA-Public Use
  Company Number: US-SANOFI-SYNTHELABO-A03200705503

PATIENT
  Age: 81 Year
  Sex: Male

DRUGS (2)
  1. BICALUTAMIDE [Concomitant]
     Indication: PROSTATE CANCER
     Route: 065
  2. ELIGARD [Suspect]
     Indication: PROSTATE CANCER
     Dosage: 22.5 MG EVERY THREE MONTHS
     Route: 058

REACTIONS (1)
  - BREAST CANCER MALE [None]
